FAERS Safety Report 8791734 (Version 1)
Quarter: 2012Q4

REPORT INFORMATION
  Report Type: 
  Country: US (occurrence: US)
  Receive Date: 20120918
  Receipt Date: 20120918
  Transmission Date: 20130627
  Serious: No
  Sender: FDA-Public Use
  Company Number: US-BAYER-2012-093940

PATIENT
  Age: 27 Year
  Sex: Female

DRUGS (1)
  1. MIRENA [Suspect]
     Indication: CONTRACEPTION
     Dosage: 20 ?g, CONT
     Route: 015
     Dates: end: 201202

REACTIONS (2)
  - Infertility female [Not Recovered/Not Resolved]
  - Menstruation irregular [Not Recovered/Not Resolved]
